FAERS Safety Report 17654391 (Version 1)
Quarter: 2020Q2

REPORT INFORMATION
  Report Type: Spontaneous
  Country: US (occurrence: US)
  Receive Date: 20200410
  Receipt Date: 20200410
  Transmission Date: 20200713
  Serious: Yes (Other)
  Sender: FDA-Public Use
  Company Number: NVSC2020US096502

PATIENT

DRUGS (3)
  1. GLEEVEC [Suspect]
     Active Substance: IMATINIB MESYLATE
     Indication: PRODUCT USED FOR UNKNOWN INDICATION
     Dosage: UNK
     Route: 065
  2. SIROLIMUS. [Concomitant]
     Active Substance: SIROLIMUS
     Dosage: 1 MG/M2 (MAXIMUM 2MG)
     Route: 065
  3. SIROLIMUS. [Concomitant]
     Active Substance: SIROLIMUS
     Indication: PULMONARY VEIN STENOSIS
     Dosage: (2-3) MG/M2 (MAXIMUM 6 MG) WAS GIVEN WITHIN 24 H OF CATHETERIZATION
     Route: 065

REACTIONS (1)
  - Pneumonia [Unknown]
